FAERS Safety Report 7200641-2 (Version None)
Quarter: 2010Q4

REPORT INFORMATION
  Report Type: 
  Country: None (occurrence: None)
  Receive Date: 20101215
  Receipt Date: 20101130
  Transmission Date: 20110411
  Serious: Yes (Death, Hospitalization)
  Sender: FDA-Public Use
  Company Number: UTC-002931

PATIENT
  Age: 54 Year
  Sex: Female
  Weight: 80 kg

DRUGS (4)
  1. REMODULIN [Suspect]
     Indication: PULMONARY HYPERTENSION
     Dosage: 44.64 UG/KG (0.031 UG/KG, 1 IN 1 MIN),INTRAVENOUS
     Route: 042
     Dates: start: 20090209, end: 20101129
  2. REVATIO [Concomitant]
  3. DIURETICS (DIURETICS) [Concomitant]
  4. COUMADIN [Concomitant]

REACTIONS (1)
  - DIARRHOEA [None]
